FAERS Safety Report 15324368 (Version 1)
Quarter: 2018Q3

REPORT INFORMATION
  Report Type: Report from Study
  Country: None (occurrence: US)
  Receive Date: 20180828
  Receipt Date: 20180828
  Transmission Date: 20181010
  Serious: Yes (Hospitalization)
  Sender: FDA-Public Use
  Company Number: US-ABBVIE-18K-163-2429613-00

PATIENT
  Sex: Male

DRUGS (2)
  1. HUMIRA [Suspect]
     Active Substance: ADALIMUMAB
     Indication: CROHN^S DISEASE
     Route: 058
     Dates: end: 2018
  2. HUMIRA [Suspect]
     Active Substance: ADALIMUMAB
     Route: 058
     Dates: start: 201802

REACTIONS (5)
  - Genital injury [Recovering/Resolving]
  - Pancreatitis [Recovered/Resolved]
  - Gastrointestinal disorder [Unknown]
  - Drug effect incomplete [Recovered/Resolved]
  - Crohn^s disease [Recovering/Resolving]
